FAERS Safety Report 7780818-8 (Version None)
Quarter: 2011Q3

REPORT INFORMATION
  Report Type: 
  Country: None (occurrence: None)
  Receive Date: 20110927
  Receipt Date: 20110921
  Transmission Date: 20111222
  Serious: Yes (Congenital Anomaly)
  Sender: FDA-Public Use
  Company Number: GB-SANOFI-AVENTIS-2011SA061936

PATIENT
  Sex: Female
  Weight: 1.76 kg

DRUGS (5)
  1. PYRIDOXINE HCL [Concomitant]
     Indication: MATERNAL EXPOSURE DURING PREGNANCY
     Route: 064
     Dates: start: 20090423, end: 20110623
  2. ACYCLOVIR [Concomitant]
     Indication: MATERNAL EXPOSURE DURING PREGNANCY
     Route: 064
     Dates: start: 20070301
  3. RIFAMPIN AND ISONIAZID [Concomitant]
     Indication: MATERNAL EXPOSURE DURING PREGNANCY
     Route: 064
     Dates: start: 20090623, end: 20090628
  4. RIFAMPICIN [Suspect]
     Indication: MATERNAL EXPOSURE DURING PREGNANCY
     Route: 064
     Dates: start: 20090423, end: 20090623
  5. ETHAMBUTOL HYDROCHLORIDE [Suspect]
     Indication: MATERNAL EXPOSURE DURING PREGNANCY
     Route: 064
     Dates: start: 20090423, end: 20090623

REACTIONS (2)
  - MATERNAL EXPOSURE DURING PREGNANCY [None]
  - DEAFNESS NEUROSENSORY [None]
